FAERS Safety Report 20644474 (Version 2)
Quarter: 2022Q2

REPORT INFORMATION
  Report Type: Spontaneous
  Country: US (occurrence: US)
  Receive Date: 20220328
  Receipt Date: 20220406
  Transmission Date: 20220721
  Serious: No
  Sender: FDA-Public Use
  Company Number: US-BAUSCH-BL-2022-007488

PATIENT
  Age: 27 Year
  Sex: Female
  Weight: 61.744 kg

DRUGS (7)
  1. XIFAXAN [Suspect]
     Active Substance: RIFAXIMIN
     Indication: Irritable bowel syndrome
     Dosage: FOR 14 DAYS
     Route: 048
     Dates: start: 202103, end: 202103
  2. XIFAXAN [Suspect]
     Active Substance: RIFAXIMIN
     Indication: Gastrointestinal bacterial overgrowth
  3. ALPRAZOLAM [Concomitant]
     Active Substance: ALPRAZOLAM
     Indication: Product used for unknown indication
     Dosage: 0.5 MG AS NEEDED
  4. CHOLESTYRAMINE LIGHT [Concomitant]
     Active Substance: CHOLESTYRAMINE
     Indication: Product used for unknown indication
     Dosage: TAKE 1 PACKET DAILY 15-20 MINUTES BEFORE BREAKFAST AND DINNER
  5. UNSPECIFIED INGREDIENT [Concomitant]
     Active Substance: UNSPECIFIED INGREDIENT
     Indication: Product used for unknown indication
     Dosage: 1 WITH HEAVY MEALS
  6. SUPREP BOWEL PREP [Concomitant]
     Active Substance: MAGNESIUM SULFATE\POTASSIUM SULFATE\SODIUM SULFATE
     Indication: Product used for unknown indication
     Dosage: 17.5-3. 13- 1.6 GRAM
  7. VENLAFAXINE [Concomitant]
     Active Substance: VENLAFAXINE HYDROCHLORIDE
     Indication: Product used for unknown indication
     Dosage: 37.5 MG 3 CAPSULES AT NIGHT

REACTIONS (7)
  - Malaise [Unknown]
  - Irritable bowel syndrome [Unknown]
  - Gastrointestinal bacterial overgrowth [Unknown]
  - Condition aggravated [Unknown]
  - Therapy interrupted [Unknown]
  - Drug effective for unapproved indication [Unknown]
  - Insurance issue [Unknown]
